FAERS Safety Report 7874888-6 (Version None)
Quarter: 2011Q4

REPORT INFORMATION
  Report Type: 
  Country: None (occurrence: None)
  Receive Date: 20111031
  Receipt Date: 20111024
  Transmission Date: 20120403
  Serious: Yes (Death)
  Sender: FDA-Public Use
  Company Number: FR-JNJFOC-20111012863

PATIENT

DRUGS (32)
  1. DOXORUBICIN HCL [Suspect]
     Indication: LYMPHOMA
     Route: 042
  2. DOXORUBICIN HCL [Suspect]
     Route: 042
  3. CYCLOPHOSPHAMIDE [Suspect]
     Route: 065
  4. CYCLOPHOSPHAMIDE [Suspect]
     Route: 065
  5. BLEOMYCIN SULFATE [Suspect]
     Indication: LYMPHOMA
     Route: 042
  6. BLEOMYCIN SULFATE [Suspect]
     Route: 042
  7. METHOTREXATE [Suspect]
     Indication: LYMPHOMA
     Route: 037
  8. CYTARABINE [Suspect]
     Indication: LYMPHOMA
  9. DOXORUBICIN HCL [Suspect]
     Route: 042
  10. CYCLOPHOSPHAMIDE [Suspect]
     Indication: LYMPHOMA
     Route: 065
  11. ELDISINE [Suspect]
     Route: 065
  12. BLEOMYCIN SULFATE [Suspect]
     Route: 042
  13. CYTARABINE [Suspect]
  14. METHOTREXATE [Suspect]
     Route: 065
  15. IFOSFAMIDE [Suspect]
     Route: 065
  16. MESNA [Suspect]
     Route: 042
  17. ELDISINE [Suspect]
     Route: 065
  18. PREDNISONE [Suspect]
     Indication: LYMPHOMA
     Route: 048
  19. IFOSFAMIDE [Suspect]
     Indication: LYMPHOMA
     Route: 065
  20. CYCLOPHOSPHAMIDE [Suspect]
     Route: 065
  21. MESNA [Suspect]
     Route: 042
  22. ELDISINE [Suspect]
     Indication: LYMPHOMA
     Route: 065
  23. ELDISINE [Suspect]
     Route: 065
  24. METHOTREXATE [Suspect]
     Route: 065
  25. ETOPOSIDE [Suspect]
     Indication: LYMPHOMA
     Route: 065
  26. IFOSFAMIDE [Suspect]
     Route: 065
  27. DOXORUBICIN HCL [Suspect]
     Route: 042
  28. MESNA [Suspect]
     Indication: LYMPHOMA
     Route: 042
  29. MESNA [Suspect]
     Route: 042
  30. BLEOMYCIN SULFATE [Suspect]
     Route: 042
  31. IFOSFAMIDE [Suspect]
     Route: 065
  32. NEUPOGEN [Concomitant]
     Route: 065

REACTIONS (1)
  - SUDDEN DEATH [None]
